FAERS Safety Report 7579921-7 (Version None)
Quarter: 2011Q2

REPORT INFORMATION
  Report Type: 
  Country: None (occurrence: None)
  Receive Date: 20110629
  Receipt Date: 20110623
  Transmission Date: 20111010
  Serious: Yes (Death)
  Sender: FDA-Public Use
  Company Number: US-GILEAD-2011-0040707

PATIENT
  Sex: Male
  Weight: 111.23 kg

DRUGS (10)
  1. REVATIO [Concomitant]
     Indication: PULMONARY HYPERTENSION
  2. ACTOS [Concomitant]
     Indication: DIABETES MELLITUS
  3. ALLOPURINOL [Concomitant]
     Indication: GOUT
  4. ADVAIR DISKUS 100/50 [Concomitant]
     Indication: CHRONIC OBSTRUCTIVE PULMONARY DISEASE
  5. LANSOPRAZOLE [Concomitant]
     Indication: GASTROOESOPHAGEAL REFLUX DISEASE
  6. NIASPAN [Concomitant]
  7. METOLAZONE [Concomitant]
  8. SODIUM BICARBONATE [Concomitant]
     Indication: RENAL FAILURE
  9. LETAIRIS [Suspect]
     Indication: PULMONARY HYPERTENSION
     Route: 048
     Dates: start: 20080421
  10. SIMVASTATIN [Concomitant]
     Indication: BLOOD CHOLESTEROL INCREASED

REACTIONS (1)
  - DEATH [None]
